FAERS Safety Report 8823167 (Version 2)
Quarter: 2012Q4

REPORT INFORMATION
  Report Type: 
  Country: NL (occurrence: NL)
  Receive Date: 20121003
  Receipt Date: 20121211
  Transmission Date: 20130627
  Serious: Yes (Hospitalization)
  Sender: FDA-Public Use
  Company Number: NL-PFIZER INC-2012240215

PATIENT
  Age: 57 Year
  Sex: Male
  Weight: 74.7 kg

DRUGS (16)
  1. GENOTROPIN [Suspect]
     Indication: PANHYPOPITUITARISM
     Dosage: 0.6 mg/day, 7 injections/week
     Route: 058
     Dates: start: 20031014
  2. LEVOTHYROXINE [Concomitant]
     Indication: THYROID STIMULATING HORMONE DECREASED
     Dosage: UNK
     Dates: start: 19900801
  3. LEVOTHYROXINE [Concomitant]
     Indication: PRIMARY HYPOTHYROIDISM
  4. HYDROCORTISONE [Concomitant]
     Indication: BLOOD CORTICOTROPHIN DECREASED
     Dosage: UNK
     Dates: start: 19900801
  5. DUSPATAL ^PHILIPS-D^ [Concomitant]
     Indication: ABNORMAL BOWEL SOUNDS
     Dosage: UNK
     Dates: start: 19971002
  6. CALCIUM [Concomitant]
     Indication: BONE DISORDER NOS
     Dosage: UNK
     Dates: start: 19980519
  7. CALCIUM [Concomitant]
     Indication: CARTILAGE DISORDER NOS
  8. DEVARON [Concomitant]
     Indication: BONE DISORDER NOS
     Dosage: UNK
     Dates: start: 19980519
  9. DEVARON [Concomitant]
     Indication: CARTILAGE DISORDER NOS
  10. ALENDRONATE SODIUM [Concomitant]
     Indication: BONE DISORDER NOS
     Dosage: UNK
     Dates: start: 19981117
  11. ALENDRONATE SODIUM [Concomitant]
     Indication: CARTILAGE DISORDER NOS
  12. MINIRIN [Concomitant]
     Indication: POLLAKIURIA
     Dosage: UNK
     Dates: start: 19990527
  13. MINIRIN [Concomitant]
     Indication: POLYURIA
  14. TESTOSTERONE [Concomitant]
     Indication: LUTEINISING HORMONE DEFICIENCY
     Dosage: UNK
     Dates: start: 19900801
  15. TESTOSTERONE [Concomitant]
     Indication: FOLLICLE-STIMULATING HORMONE DEFICIENCY
  16. TESTOSTERONE [Concomitant]
     Indication: TESTICULAR HYPOGONADISM

REACTIONS (1)
  - Craniopharyngioma [Unknown]
